FAERS Safety Report 19104164 (Version 1)
Quarter: 2021Q2

REPORT INFORMATION
  Report Type: Spontaneous
  Country: SE (occurrence: SE)
  Receive Date: 20210407
  Receipt Date: 20210407
  Transmission Date: 20210717
  Serious: Yes (Other)
  Sender: FDA-Public Use
  Company Number: SE-EISAI MEDICAL RESEARCH-EC-2021-090445

PATIENT
  Age: 79 Year
  Sex: Male

DRUGS (2)
  1. DONEPEZIL. [Suspect]
     Active Substance: DONEPEZIL
     Route: 048
  2. DONEPEZIL. [Suspect]
     Active Substance: DONEPEZIL
     Indication: DISTURBANCE IN ATTENTION
     Route: 048

REACTIONS (6)
  - Abnormal behaviour [Unknown]
  - Amnesia [Unknown]
  - Product use in unapproved indication [Unknown]
  - Confusional state [Unknown]
  - Rash macular [Unknown]
  - Dementia Alzheimer^s type [Unknown]
